FAERS Safety Report 8789719 (Version 1)
Quarter: 2012Q4

REPORT INFORMATION
  Report Type: Spontaneous
  Country: IT (occurrence: None)
  Receive Date: 20120906
  Receipt Date: 20120906
  Transmission Date: 20130627
  Serious: Yes (Life-Threatening, Hospitalization)
  Sender: FDA-Public Use
  Company Number: FK201202561

PATIENT
  Age: 61 Year
  Sex: Female

DRUGS (1)
  1. CEFTRIAXONE [Suspect]
     Indication: BACTERIAL INFECTION
     Route: 030
     Dates: start: 20120626, end: 20120626

REACTIONS (3)
  - Anaphylactic shock [None]
  - Anoxia [None]
  - Cardio-respiratory arrest [None]
